FAERS Safety Report 6393316-3 (Version None)
Quarter: 2009Q4

REPORT INFORMATION
  Report Type: 
  Country: None (occurrence: None)
  Receive Date: 20091008
  Receipt Date: 20091008
  Transmission Date: 20100525
  Serious: Yes (Other)
  Sender: FDA-Public Use
  Company Number: PHHO2009US09816

PATIENT
  Sex: Female

DRUGS (18)
  1. ALISKIREN ALI+TAB+HT [Suspect]
     Indication: ESSENTIAL HYPERTENSION
     Dosage: 300 MG, QD
     Route: 048
     Dates: start: 20080804, end: 20090816
  2. HYDROCHLOROTHIAZIDE [Suspect]
     Indication: ESSENTIAL HYPERTENSION
     Dosage: 12.5 MG, QD
     Dates: start: 20080904
  3. HYDROCHLOROTHIAZIDE [Suspect]
     Dosage: UNK
     Dates: start: 20080514, end: 20080610
  4. ALBUTEROL [Concomitant]
     Indication: ASTHMA
  5. ATROVENT [Concomitant]
  6. PREDNISOLONE [Concomitant]
  7. AZITHROMYCIN [Concomitant]
  8. PROAIR HFA [Concomitant]
  9. LORATADINE [Concomitant]
  10. NAPROSYN [Concomitant]
  11. DUONEB [Concomitant]
  12. FENTANYL-100 [Concomitant]
  13. MIDAZOLAM HCL [Concomitant]
  14. OXYGEN [Concomitant]
  15. SODIUM CHLORIDE [Concomitant]
  16. MULTI-VITAMINS [Concomitant]
  17. ASPIRIN [Concomitant]
  18. BENADRYL [Concomitant]

REACTIONS (2)
  - COLONIC POLYP [None]
  - POLYPECTOMY [None]
